FAERS Safety Report 16982741 (Version 3)
Quarter: 2019Q4

REPORT INFORMATION
  Report Type: Spontaneous
  Country: US (occurrence: US)
  Receive Date: 20191101
  Receipt Date: 20191127
  Transmission Date: 20200122
  Serious: Yes (Other)
  Sender: FDA-Public Use
  Company Number: US-JNJFOC-20191033606

PATIENT
  Age: 45 Year
  Sex: Female
  Weight: 70.37 kg

DRUGS (3)
  1. FOLIC ACID. [Concomitant]
     Active Substance: FOLIC ACID
  2. METHOTREXATE. [Concomitant]
     Active Substance: METHOTREXATE
     Indication: CROHN^S DISEASE
     Dosage: 2.5MG
  3. STELARA [Suspect]
     Active Substance: USTEKINUMAB
     Indication: CROHN^S DISEASE
     Route: 058
     Dates: start: 201906

REACTIONS (7)
  - Product dose omission [Not Recovered/Not Resolved]
  - Septic shock [Recovered/Resolved]
  - Intestinal resection [Unknown]
  - Abscess [Recovered/Resolved]
  - Intestinal perforation [Unknown]
  - Blood sodium decreased [Recovered/Resolved]
  - Device malfunction [Unknown]

NARRATIVE: CASE EVENT DATE: 20191018
